FAERS Safety Report 10488364 (Version 1)
Quarter: 2014Q4

REPORT INFORMATION
  Report Type: Report from Study
  Country: EG (occurrence: EG)
  Receive Date: 20141002
  Receipt Date: 20141002
  Transmission Date: 20150528
  Serious: Yes (Other)
  Sender: FDA-Public Use
  Company Number: EG-ROCHE-1468154

PATIENT
  Age: 48 Year
  Sex: Male
  Weight: 62 kg

DRUGS (5)
  1. AMANTADINE HYDROCHLORIDE. [Concomitant]
     Active Substance: AMANTADINE HYDROCHLORIDE
     Dosage: AS ANTIVIRAL
     Route: 048
  2. PEGINTERFERON ALFA-2A [Suspect]
     Active Substance: PEGINTERFERON ALFA-2A
     Indication: CHRONIC HEPATITIS C
     Route: 058
     Dates: start: 20090718, end: 20100219
  3. RIBAVIRIN. [Suspect]
     Active Substance: RIBAVIRIN
     Indication: CHRONIC HEPATITIS C
     Route: 048
     Dates: start: 20090718, end: 20100219
  4. FOLIC ACID. [Concomitant]
     Active Substance: FOLIC ACID
     Dosage: AS FOOD SUPPLEMENT
     Route: 048
     Dates: start: 20091007
  5. URSODEOXYCHOLIC ACID [Concomitant]
     Active Substance: URSODIOL
     Dosage: FOR HEPATIC SUPPORT
     Route: 048

REACTIONS (2)
  - Leukopenia [Recovered/Resolved]
  - Insomnia [Unknown]

NARRATIVE: CASE EVENT DATE: 20091007
